FAERS Safety Report 8974164 (Version 2)
Quarter: 2013Q1

REPORT INFORMATION
  Report Type: Spontaneous
  Country: DK (occurrence: None)
  Receive Date: 20121213
  Receipt Date: 20130118
  Transmission Date: 20140127
  Serious: Yes (Life-Threatening, Hospitalization)
  Sender: FDA-Public Use
  Company Number: 2012MA013944

PATIENT
  Age: 81 Year
  Sex: Male

DRUGS (3)
  1. RAMIPRIL [Suspect]
     Indication: HYPERTENSION
     Route: 048
     Dates: end: 20101119
  2. CANDESARTAN [Suspect]
     Indication: HYPERTENSION
     Route: 048
  3. NIFEDIPINE [Concomitant]

REACTIONS (1)
  - Medication error [None]
